FAERS Safety Report 13953538 (Version 7)
Quarter: 2019Q1

REPORT INFORMATION
  Report Type: Spontaneous
  Country: US (occurrence: US)
  Receive Date: 20170911
  Receipt Date: 20190211
  Transmission Date: 20190417
  Serious: Yes (Hospitalization)
  Sender: FDA-Public Use
  Company Number: US-PFIZER INC-2016524303

PATIENT
  Age: 69 Year
  Sex: Female
  Weight: 86 kg

DRUGS (16)
  1. PREMARIN [Suspect]
     Active Substance: ESTROGENS, CONJUGATED
     Dosage: 0.625 MG, UNK EVERY TWO WEEKS
     Route: 067
     Dates: end: 201807
  2. PREMARIN [Suspect]
     Active Substance: ESTROGENS, CONJUGATED
     Indication: VULVOVAGINAL DRYNESS
     Dosage: UNK, AS NEEDED, (2CC INSERTED VAGINALLY WITH PLASTIC APPLICATOR)
     Route: 067
     Dates: start: 201612
  3. PREMARIN [Suspect]
     Active Substance: ESTROGENS, CONJUGATED
     Indication: MUSCLE SPASMS
     Dosage: UNK
     Route: 067
  4. REPLENS [Concomitant]
     Active Substance: CARBOMER 934\GLYCERIN\METHYLPARABEN\PROPYLPARABEN\SODIUM HYDROXIDE
     Dosage: UNK
  5. AMOXCLAV [AMOXICILLIN TRIHYDRATE;CLAVULANATE POTASSIUM] [Concomitant]
     Indication: SINUSITIS
     Dosage: UNK, 3X/DAY
     Dates: start: 20190110, end: 20190121
  6. CENTRUM SILVER +50 [Concomitant]
     Dosage: UNK
  7. GABAPENTIN. [Concomitant]
     Active Substance: GABAPENTIN
     Indication: MUSCLE SPASMS
     Dosage: 300 MG, 1X/DAY (1 PILL AT NIGHTTIME)
     Dates: start: 20190110
  8. PREMARIN [Suspect]
     Active Substance: ESTROGENS, CONJUGATED
     Indication: PAIN
     Dosage: 1 G, DAILY (3X WEEKLY)
     Route: 067
  9. METFORMIN HCL [Concomitant]
     Active Substance: METFORMIN HYDROCHLORIDE
     Dosage: 500 MG, 1X/DAY (AT BEDTIME)
     Route: 048
  10. ACETAMINOPHEN. [Concomitant]
     Active Substance: ACETAMINOPHEN
     Indication: PAIN
     Dosage: UNK
  11. EQUATE [Concomitant]
     Dosage: UNK UNK, DAILY
  12. PARACETAMOL [Concomitant]
     Active Substance: ACETAMINOPHEN
     Indication: PAIN
     Dosage: 1000 MG, 2X/DAY (TWO 500MG CAPSULES BY MOUTH IN THE MORNING, TWO 500MG CAPSULES BY MOUTH IN EVENING)
     Route: 048
  13. EQUATE [Concomitant]
     Dosage: 500 MG, AS NEEDED (EVERY 6 HOURS-WHEN NEEDED)
  14. PREMARIN [Suspect]
     Active Substance: ESTROGENS, CONJUGATED
     Dosage: 1 G, UNK EVERY NIGHT 3X WEEKLY
     Route: 067
     Dates: start: 20161227
  15. OXYTROL [Concomitant]
     Active Substance: OXYBUTYNIN
     Dosage: 3.9 MG, DAILY (APPLY 1 PATCH ABD, BUTTOCK OR HIP BLW)
     Route: 062
  16. FOLIC ACID. [Concomitant]
     Active Substance: FOLIC ACID
     Dosage: UNK

REACTIONS (3)
  - Abdominal pain lower [Recovered/Resolved]
  - Abdominal pain lower [Not Recovered/Not Resolved]
  - Toothache [Recovering/Resolving]

NARRATIVE: CASE EVENT DATE: 201612
